FAERS Safety Report 8010378-8 (Version None)
Quarter: 2011Q4

REPORT INFORMATION
  Report Type: 
  Country: None (occurrence: None)
  Receive Date: 20111228
  Receipt Date: 20111221
  Transmission Date: 20120403
  Serious: Yes (Death, Other)
  Sender: FDA-Public Use
  Company Number: JP-ASTELLAS-2011JP003752

PATIENT
  Age: 72 Year
  Sex: Female

DRUGS (7)
  1. INFLIXIMAB [Concomitant]
     Indication: RHEUMATOID ARTHRITIS
     Dosage: UNK
     Route: 065
  2. METHOTREXATE [Concomitant]
     Indication: RHEUMATOID ARTHRITIS
     Dosage: UNK
     Route: 065
  3. ANTIBIOTICS [Concomitant]
     Indication: PYREXIA
     Route: 065
  4. PREDNISOLONE [Concomitant]
     Indication: RHEUMATOID ARTHRITIS
     Dosage: UNK
     Route: 065
  5. ETHANOL [Concomitant]
     Indication: HEPATIC NEOPLASM MALIGNANT
     Route: 065
  6. NSAID'S [Concomitant]
     Indication: PYREXIA
     Route: 065
  7. PROGRAF [Suspect]
     Indication: RHEUMATOID ARTHRITIS
     Dosage: UNK
     Route: 065

REACTIONS (3)
  - HEPATIC CIRRHOSIS [None]
  - LYMPHOMA [None]
  - HEPATIC NEOPLASM MALIGNANT [None]
